FAERS Safety Report 15209519 (Version 2)
Quarter: 2018Q3

REPORT INFORMATION
  Report Type: Spontaneous
  Country: JP (occurrence: JP)
  Receive Date: 20180727
  Receipt Date: 20180801
  Transmission Date: 20181010
  Serious: Yes (Other)
  Sender: FDA-Public Use
  Company Number: JP-PFIZER INC-2018299933

PATIENT
  Age: 62 Year
  Sex: Female

DRUGS (1)
  1. IRINOTECAN HCL [Suspect]
     Active Substance: IRINOTECAN HYDROCHLORIDE
     Indication: NEUROENDOCRINE CARCINOMA
     Dosage: (DAY1/DAY8/DAY15, 100 MG/M^2)
     Dates: start: 201508, end: 2015

REACTIONS (2)
  - Diarrhoea [Unknown]
  - Ileus paralytic [Unknown]

NARRATIVE: CASE EVENT DATE: 2015
